FAERS Safety Report 4534893-4 (Version None)
Quarter: 2004Q4

REPORT INFORMATION
  Report Type: 
  Country: None (occurrence: None)
  Receive Date: 20041222
  Receipt Date: 20040707
  Transmission Date: 20050328
  Serious: No
  Sender: FDA-Public Use
  Company Number: US-BRISTOL-MYERS SQUIBB COMPANY-12633897

PATIENT
  Sex: Female

DRUGS (7)
  1. PRAVACHOL [Suspect]
  2. PREVACID [Concomitant]
  3. NORVASC [Concomitant]
  4. LASIX [Concomitant]
  5. ZANTAC [Concomitant]
  6. LOMOTIL [Concomitant]
  7. PANCREASE [Concomitant]

REACTIONS (1)
  - ARTHRALGIA [None]
